FAERS Safety Report 8926121 (Version 1)
Quarter: 2012Q4

REPORT INFORMATION
  Report Type: Report from Study
  Country: CA (occurrence: CA)
  Receive Date: 20121126
  Receipt Date: 20121126
  Transmission Date: 20130627
  Serious: Yes (Other)
  Sender: FDA-Public Use
  Company Number: CA-JNJFOC-20121109532

PATIENT
  Age: 67 Year
  Sex: Female

DRUGS (8)
  1. REMICADE [Suspect]
     Indication: RHEUMATOID ARTHRITIS
     Dosage: last infusion on 11-OCT-2012
     Route: 042
     Dates: start: 20100303
  2. REMICADE [Suspect]
     Indication: RHEUMATOID ARTHRITIS
     Dosage: last infusion on 11-OCT-2012
     Route: 042
     Dates: start: 20121001
  3. ARAVA [Concomitant]
     Route: 065
  4. CLINORIL [Concomitant]
     Route: 065
  5. ENTROPHEN [Concomitant]
     Route: 065
  6. PANTOLOC [Concomitant]
     Route: 065
  7. SPIRONOLACTONE [Concomitant]
     Route: 065
  8. TIAZAC [Concomitant]
     Route: 065

REACTIONS (1)
  - Foot operation [Unknown]
